FAERS Safety Report 15311570 (Version 1)
Quarter: 2018Q3

REPORT INFORMATION
  Report Type: Spontaneous
  Country: DE (occurrence: DE)
  Receive Date: 20180823
  Receipt Date: 20180823
  Transmission Date: 20181010
  Serious: Yes (Hospitalization)
  Sender: FDA-Public Use
  Company Number: DE-TORRENT-00009594

PATIENT
  Sex: Female

DRUGS (2)
  1. OLANZAPIN [Suspect]
     Active Substance: OLANZAPINE
     Indication: PRODUCT USED FOR UNKNOWN INDICATION
     Dosage: UNK
     Route: 048
     Dates: end: 201805
  2. BIPERIDEN [Concomitant]
     Active Substance: BIPERIDEN
     Indication: PRODUCT USED FOR UNKNOWN INDICATION
     Dosage: UNK

REACTIONS (5)
  - Skin discolouration [Unknown]
  - Facial wasting [Unknown]
  - Memory impairment [Recovering/Resolving]
  - Restless legs syndrome [Unknown]
  - Dyskinesia [Unknown]
